FAERS Safety Report 22078983 (Version 1)
Quarter: 2023Q1

REPORT INFORMATION
  Report Type: Other
  Country: CL (occurrence: None)
  Receive Date: 20230309
  Receipt Date: 20230309
  Transmission Date: 20230418
  Serious: Yes (Death)
  Sender: FDA-Public Use
  Company Number: CL-ROCHE-3301638

PATIENT
  Age: 46 Year
  Sex: Female

DRUGS (2)
  1. CAPECITABINE [Suspect]
     Active Substance: CAPECITABINE
     Indication: Breast cancer
     Route: 042
     Dates: start: 20221031, end: 20221111
  2. LETROZOLE [Suspect]
     Active Substance: LETROZOLE
     Indication: Breast cancer
     Route: 048
     Dates: start: 20220510

REACTIONS (10)
  - Diarrhoea [Fatal]
  - Abdominal pain [Fatal]
  - Vomiting [Fatal]
  - Dehydration [Fatal]
  - Tachycardia [Fatal]
  - Hypertension [Fatal]
  - Blood glucose increased [Fatal]
  - Septic shock [Fatal]
  - Hypovolaemic shock [Fatal]
  - Poor peripheral circulation [Fatal]

NARRATIVE: CASE EVENT DATE: 20221105
